FAERS Safety Report 8187615-2 (Version None)
Quarter: 2012Q1

REPORT INFORMATION
  Report Type: 
  Country: None (occurrence: None)
  Receive Date: 20120306
  Receipt Date: 20120222
  Transmission Date: 20120608
  Serious: Yes (Hospitalization)
  Sender: FDA-Public Use
  Company Number: CA-ELI_LILLY_AND_COMPANY-CA201202007688

PATIENT
  Age: 50 Year
  Sex: Female

DRUGS (5)
  1. ABILIFY [Concomitant]
  2. WELLBUTRIN [Concomitant]
  3. VYVANSE [Concomitant]
  4. SEROQUEL [Concomitant]
  5. CYMBALTA [Suspect]
     Indication: DEPRESSION
     Dosage: 60 MG, UNK
     Dates: start: 20111201, end: 20120201

REACTIONS (2)
  - HEPATIC ENZYME INCREASED [None]
  - CARDIAC FAILURE [None]
